FAERS Safety Report 6089516-2 (Version None)
Quarter: 2009Q1

REPORT INFORMATION
  Report Type: 
  Country: None (occurrence: None)
  Receive Date: 20090224
  Receipt Date: 20090206
  Transmission Date: 20090719
  Serious: Yes (Hospitalization)
  Sender: FDA-Public Use
  Company Number: US-PFIZER INC-2007058285

PATIENT
  Sex: Female
  Weight: 49 kg

DRUGS (8)
  1. CHANTIX [Suspect]
     Indication: EX-TOBACCO USER
     Dosage: UNK
     Dates: start: 20070321, end: 20070402
  2. CHANTIX [Suspect]
     Dosage: UNK
     Dates: start: 20080301, end: 20080401
  3. CHANTIX [Suspect]
     Dosage: UNK
     Dates: start: 20090205
  4. HYDROCODONE [Concomitant]
  5. LEXAPRO [Concomitant]
  6. ACETYLSALICYLIC ACID [Concomitant]
  7. SIMVASTATIN [Concomitant]
  8. INSULIN [Concomitant]
     Indication: DIABETES MELLITUS

REACTIONS (1)
  - GASTRIC DISORDER [None]
